FAERS Safety Report 4504077-4 (Version None)
Quarter: 2004Q4

REPORT INFORMATION
  Report Type: 
  Country: None (occurrence: None)
  Receive Date: 20041118
  Receipt Date: 20041109
  Transmission Date: 20050328
  Serious: Yes (Hospitalization)
  Sender: FDA-Public Use
  Company Number: US-JNJFOC-20041102616

PATIENT
  Sex: Male
  Weight: 78.02 kg

DRUGS (1)
  1. REMICADE [Suspect]
     Route: 042

REACTIONS (5)
  - ERYTHEMA [None]
  - INFECTION [None]
  - INFUSION RELATED REACTION [None]
  - PYREXIA [None]
  - TREMOR [None]
